FAERS Safety Report 4635436-7 (Version None)
Quarter: 2005Q2

REPORT INFORMATION
  Report Type: 
  Country: None (occurrence: None)
  Receive Date: 20050414
  Receipt Date: 20050401
  Transmission Date: 20051028
  Serious: Yes (Life-Threatening, Hospitalization, Disabling, Other)
  Sender: FDA-Public Use
  Company Number: 2005017556

PATIENT
  Age: 57 Year
  Sex: Male
  Weight: 75 kg

DRUGS (6)
  1. ZOLOFT [Suspect]
     Indication: DEPRESSION
     Dosage: 100 MG (50 MG, 2 IN 1 D), ORAL
     Route: 048
     Dates: start: 20041117, end: 20041124
  2. MIANSERIN HYDROCHLORIDE (MIANSERIN HYDROCHLORIDE) [Concomitant]
  3. LORMETAZEPAM (LORMETAZEPAM) [Concomitant]
  4. VENLAFAXINE HCL [Concomitant]
  5. AMITRIPTYLINE HCL [Concomitant]
  6. PAROXETINE HCL [Concomitant]

REACTIONS (8)
  - INSOMNIA [None]
  - INTENTIONAL SELF-INJURY [None]
  - MAJOR DEPRESSION [None]
  - ORTHOPEDIC EXAMINATION ABNORMAL [None]
  - PAIN [None]
  - PHARMACEUTICAL PRODUCT COMPLAINT [None]
  - STRESS [None]
  - SUICIDE ATTEMPT [None]
